FAERS Safety Report 6961872-X (Version None)
Quarter: 2010Q3

REPORT INFORMATION
  Report Type: 
  Country: None (occurrence: None)
  Receive Date: 20100902
  Receipt Date: 20100825
  Transmission Date: 20110219
  Serious: No
  Sender: FDA-Public Use
  Company Number: US-BIOGENIDEC-2008BI029852

PATIENT
  Sex: Female

DRUGS (1)
  1. TYSABRI [Suspect]
     Indication: MULTIPLE SCLEROSIS
     Route: 042
     Dates: start: 20070101

REACTIONS (10)
  - EYE IRRITATION [None]
  - EYE PAIN [None]
  - FALL [None]
  - HEAD INJURY [None]
  - HEADACHE [None]
  - OSTEOARTHRITIS [None]
  - PAIN OF SKIN [None]
  - RHEUMATOID ARTHRITIS [None]
  - SENSATION OF HEAVINESS [None]
  - STRESS [None]
